FAERS Safety Report 9210113 (Version 4)
Quarter: 2013Q3

REPORT INFORMATION
  Report Type: Report from Study
  Country: DE (occurrence: DE)
  Receive Date: 20130404
  Receipt Date: 20130802
  Transmission Date: 20140515
  Serious: Yes (Hospitalization)
  Sender: FDA-Public Use
  Company Number: DE-ROCHE-1207508

PATIENT
  Age: 63 Year
  Sex: Female
  Weight: 80 kg

DRUGS (3)
  1. BEVACIZUMAB [Suspect]
     Indication: BREAST CANCER
     Dosage: LAST DOSE PRIOR TO SAE: 21/FEB/2013
     Route: 042
     Dates: start: 20110914
  2. CAPECITABINE [Suspect]
     Indication: BREAST CANCER
     Dosage: MOST RECENT DOSE : 25/MAR/2013
     Route: 048
     Dates: start: 20110914
  3. VINORELBINE [Suspect]
     Indication: BREAST CANCER
     Dosage: MOST RECENT DOSE : 14/MAR/2013
     Route: 042
     Dates: start: 20110914, end: 20120314

REACTIONS (2)
  - Osteomyelitis [Recovered/Resolved]
  - Osteonecrosis [Recovered/Resolved]
